APPROVED DRUG PRODUCT: METAPROTERENOL SULFATE
Active Ingredient: METAPROTERENOL SULFATE
Strength: 0.4%
Dosage Form/Route: SOLUTION;INHALATION
Application: A075586 | Product #001
Applicant: WOCKHARDT EU OPERATIONS (SWISS) AG
Approved: May 30, 2002 | RLD: No | RS: No | Type: DISCN